FAERS Safety Report 14290587 (Version 11)
Quarter: 2021Q1

REPORT INFORMATION
  Report Type: Report from Study
  Country: JP (occurrence: JP)
  Receive Date: 20171215
  Receipt Date: 20210324
  Transmission Date: 20210419
  Serious: Yes (Life-Threatening, Hospitalization, Other)
  Sender: FDA-Public Use
  Company Number: JP-BRISTOL-MYERS SQUIBB COMPANY-BMS-2017-113311

PATIENT
  Age: 69 Year
  Sex: Female
  Weight: 64 kg

DRUGS (4)
  1. PURSENNIDE [SENNA ALEXANDRINA LEAF] [Concomitant]
     Indication: CONSTIPATION
     Dosage: 24 MG, QD
     Route: 048
  2. NIVOLUMAB [Suspect]
     Active Substance: NIVOLUMAB
     Indication: RENAL CELL CARCINOMA
     Dosage: 3 MG/KG, UNK
     Route: 041
     Dates: end: 20180316
  3. MAGMITT [Concomitant]
     Active Substance: MAGNESIUM OXIDE
     Indication: CONSTIPATION
     Dosage: 330 MG, TID
     Route: 048
  4. ARGAMATE [Concomitant]
     Active Substance: CALCIUM POLYSTYRENE SULFONATE
     Indication: PRODUCT USED FOR UNKNOWN INDICATION
     Dosage: 25 G, BID
     Route: 048
     Dates: start: 20170414, end: 20180426

REACTIONS (8)
  - General physical health deterioration [Unknown]
  - Compression fracture [Unknown]
  - Myocarditis [Recovered/Resolved with Sequelae]
  - Interstitial lung disease [Unknown]
  - Pericarditis [Recovered/Resolved with Sequelae]
  - Cardiac tamponade [Recovering/Resolving]
  - Pleural effusion [Unknown]
  - Malignant neoplasm progression [Unknown]

NARRATIVE: CASE EVENT DATE: 2016
